FAERS Safety Report 7983278-7 (Version None)
Quarter: 2011Q4

REPORT INFORMATION
  Report Type: 
  Country: None (occurrence: None)
  Receive Date: 20111215
  Receipt Date: 20111210
  Transmission Date: 20120403
  Serious: No
  Sender: FDA-Public Use
  Company Number: US-B.I. PHARMACEUTICALS,INC./RIDGEFIELD-2011-BP-27846BP

PATIENT
  Sex: Male

DRUGS (4)
  1. PRAVASTATIN [Concomitant]
  2. VITAMIN [Concomitant]
  3. VALACYCLOVIR [Concomitant]
  4. PRADAXA [Suspect]
     Indication: ATRIAL FLUTTER
     Dosage: 300 MG
     Route: 048
     Dates: start: 20111101

REACTIONS (2)
  - ABDOMINAL DISCOMFORT [None]
  - ODYNOPHAGIA [None]
